FAERS Safety Report 9233542 (Version 1)
Quarter: 2013Q2

REPORT INFORMATION
  Report Type: Spontaneous
  Country: US (occurrence: None)
  Receive Date: 20130415
  Receipt Date: 20130415
  Transmission Date: 20140414
  Serious: Yes (Other)
  Sender: FDA-Public Use
  Company Number: None

PATIENT
  Age: 61 Year
  Sex: Male

DRUGS (2)
  1. PEGASYS 180MCG GENENTECH [Suspect]
     Indication: HEPATITIS C
     Dates: start: 20130123
  2. RIBAVIRIN [Suspect]
     Indication: HEPATITIS C
     Route: 048
     Dates: start: 20130123

REACTIONS (6)
  - Dyspnoea [None]
  - Abasia [None]
  - Tremor [None]
  - Dysgraphia [None]
  - Hallucination [None]
  - Transfusion [None]
